FAERS Safety Report 6655355-4 (Version None)
Quarter: 2010Q1

REPORT INFORMATION
  Report Type: 
  Country: None (occurrence: None)
  Receive Date: 20100329
  Receipt Date: 20100318
  Transmission Date: 20100710
  Serious: Yes (Hospitalization, Other)
  Sender: FDA-Public Use
  Company Number: PHHY2009BR50457

PATIENT
  Sex: Male
  Weight: 106 kg

DRUGS (19)
  1. TEGRETOL [Suspect]
     Indication: SCHIZOPHRENIA
     Dosage: 1 DF, DAILY
     Dates: start: 20040101
  2. TEGRETOL [Interacting]
     Dosage: 200 MG, EVERY 12 HOURS,BID,2 TABLETS DAILY.
  3. TEGRETOL [Interacting]
     Dosage: 400 MG, Q12H
     Dates: start: 20091117
  4. TEGRETOL-XR [Interacting]
     Indication: SCHIZOPHRENIA, PARANOID TYPE
     Dosage: 400 MG, 1 TABLET AT LUNCH AND OTHER BEFORE SLEEPING
  5. RIVOTRIL [Interacting]
     Dosage: 5 DROPS, DAILY
  6. RIVOTRIL [Interacting]
     Dosage: 60 DRP, DAILY
     Dates: start: 20080501
  7. GEODON [Interacting]
     Dosage: 1 DF, DAILY
     Dates: start: 20080401
  8. RISPERIDONE [Concomitant]
     Dosage: UNK
  9. RISPERIDONE [Concomitant]
     Dosage: 1 DF, DAILY
     Dates: start: 20060101, end: 20070101
  10. HALDOL [Concomitant]
     Dosage: UNK
     Dates: start: 20070101
  11. ZYPREXA [Concomitant]
     Dosage: QID
  12. ZYPREXA [Concomitant]
     Dosage: MAXIMUM DOSAGE
     Dates: start: 20071001, end: 20080401
  13. NEOZINE [Concomitant]
     Dosage: 25 MG, AT NIGHT
  14. NEOZINE [Concomitant]
     Dosage: 100 MG, UNK
  15. PAROXETINE HCL [Concomitant]
     Dosage: 1 DF, BID
  16. AMPLICTIL [Concomitant]
     Dosage: 2 DF, AT NIGHT
  17. SERTRALINE HCL [Concomitant]
     Dosage: 50 MG, BID
     Dates: start: 20050101, end: 20080801
  18. BIPERIDEN HYDROCHLORIDE TAB [Concomitant]
  19. PONDERA [Concomitant]

REACTIONS (21)
  - AGGRESSION [None]
  - ANTICONVULSANT DRUG LEVEL DECREASED [None]
  - BLOOD CHOLESTEROL INCREASED [None]
  - BLOOD TRIGLYCERIDES INCREASED [None]
  - CRYING [None]
  - DELUSION [None]
  - DEPRESSION [None]
  - DRUG LEVEL DECREASED [None]
  - HALLUCINATION, AUDITORY [None]
  - HALLUCINATIONS, MIXED [None]
  - INSOMNIA [None]
  - MENTAL DISORDER [None]
  - MOOD SWINGS [None]
  - PANIC ATTACK [None]
  - PANIC DISORDER [None]
  - PANIC REACTION [None]
  - PSYCHOTIC DISORDER [None]
  - SUICIDE ATTEMPT [None]
  - WEIGHT INCREASED [None]
  - WHITE BLOOD CELL COUNT INCREASED [None]
  - WITHDRAWAL SYNDROME [None]
